FAERS Safety Report 13226172 (Version 5)
Quarter: 2017Q2

REPORT INFORMATION
  Report Type: Spontaneous
  Country: US (occurrence: US)
  Receive Date: 20170213
  Receipt Date: 20170627
  Transmission Date: 20170830
  Serious: No
  Sender: FDA-Public Use
  Company Number: US-PFIZER INC-2017056690

PATIENT
  Age: 75 Year
  Sex: Female

DRUGS (7)
  1. HYDROCODONE/ACETAMINOPHEN [Concomitant]
     Active Substance: ACETAMINOPHEN\HYDROCODONE
     Indication: NEUROPATHY PERIPHERAL
     Dosage: UNK UNK, DAILY (HYDROCODONE 10/325.)
  2. HYDROCODONE/ACETAMINOPHEN [Concomitant]
     Active Substance: ACETAMINOPHEN\HYDROCODONE
     Indication: HERPES ZOSTER
  3. IBRANCE [Suspect]
     Active Substance: PALBOCICLIB
     Dosage: UNK, 1X/DAY (OD 125)
  4. IBRANCE [Suspect]
     Active Substance: PALBOCICLIB
     Dosage: 100 MG, DAILY
     Dates: start: 201701
  5. GABAPENTIN. [Concomitant]
     Active Substance: GABAPENTIN
     Indication: NEUROPATHY PERIPHERAL
     Dosage: 3200 MG, DAILY
  6. GABAPENTIN. [Concomitant]
     Active Substance: GABAPENTIN
     Indication: HERPES ZOSTER
  7. IBRANCE [Suspect]
     Active Substance: PALBOCICLIB
     Indication: BREAST CANCER METASTATIC
     Dosage: 125 MG, DAILY (21)
     Dates: start: 20170109

REACTIONS (4)
  - White blood cell count decreased [Unknown]
  - Muscle spasms [Unknown]
  - Platelet count decreased [Unknown]
  - Nausea [Unknown]

NARRATIVE: CASE EVENT DATE: 201701
